FAERS Safety Report 17576803 (Version 5)
Quarter: 2021Q1

REPORT INFORMATION
  Report Type: Spontaneous
  Country: US (occurrence: US)
  Receive Date: 20200324
  Receipt Date: 20210320
  Transmission Date: 20210419
  Serious: No
  Sender: FDA-Public Use
  Company Number: US-ACORDA-ACO_164375_2020

PATIENT
  Age: 81 Year
  Sex: Male

DRUGS (10)
  1. INBRIJA [Suspect]
     Active Substance: LEVODOPA
     Indication: ON AND OFF PHENOMENON
     Dosage: 42 MILLIGRAM, 3?4 TIMES A DAY PRN
  2. EZETIMIBE W/SIMVASTATIN [Concomitant]
     Active Substance: EZETIMIBE
     Indication: PRODUCT USED FOR UNKNOWN INDICATION
     Dosage: 10?20MG, 1 TABLET AT BEDTIME
     Route: 065
  3. LEVOTHYROXINE. [Concomitant]
     Active Substance: LEVOTHYROXINE
     Indication: PRODUCT USED FOR UNKNOWN INDICATION
     Dosage: 125 MILLIGRAM, QD
     Route: 065
  4. INBRIJA [Suspect]
     Active Substance: LEVODOPA
     Indication: PARKINSON^S DISEASE
     Dosage: 2 CAPSULES (84 MG), PRN
     Dates: start: 20200302
  5. STALEVO [Concomitant]
     Active Substance: CARBIDOPA\ENTACAPONE\LEVODOPA
     Indication: PRODUCT USED FOR UNKNOWN INDICATION
     Dosage: 150 MILLIGRAM, Q 4 HRS (6X/QD)
     Route: 065
  6. THYROID PILLS [Concomitant]
     Indication: PRODUCT USED FOR UNKNOWN INDICATION
     Dosage: UNK
     Route: 065
  7. CARBIDOPA AND LEVODOPA [Concomitant]
     Active Substance: CARBIDOPA\LEVODOPA
     Indication: PRODUCT USED FOR UNKNOWN INDICATION
     Dosage: 25/150 MG; 1 PILL 6 TIMES A DAY
     Route: 065
  8. LODOSYN [Concomitant]
     Active Substance: CARBIDOPA
     Indication: PRODUCT USED FOR UNKNOWN INDICATION
     Dosage: UNK
     Route: 065
  9. OMEPRAZOLE. [Concomitant]
     Active Substance: OMEPRAZOLE
     Indication: PRODUCT USED FOR UNKNOWN INDICATION
     Dosage: 40 MILLIGRAM, QD
     Route: 065
  10. CARBIDOPA. [Concomitant]
     Active Substance: CARBIDOPA
     Indication: PRODUCT USED FOR UNKNOWN INDICATION
     Dosage: 25 MG, 1 TABLET EVERY 4HRS (6X/QD)
     Route: 065

REACTIONS (18)
  - Product residue present [Unknown]
  - Device effect decreased [Unknown]
  - Cough [Not Recovered/Not Resolved]
  - Device defective [Unknown]
  - Product physical issue [Unknown]
  - Product cleaning inadequate [Unknown]
  - Device occlusion [Unknown]
  - Respiratory tract infection [Recovered/Resolved]
  - Intentional overdose [Unknown]
  - Throat irritation [Unknown]
  - Nausea [Unknown]
  - Skin discolouration [Unknown]
  - Drug effect less than expected [Unknown]
  - Sputum discoloured [Unknown]
  - Dizziness [Unknown]
  - Device deposit issue [Unknown]
  - Device issue [Unknown]
  - Asthenia [Unknown]

NARRATIVE: CASE EVENT DATE: 20200504
